FAERS Safety Report 12779304 (Version 1)
Quarter: 2016Q3

REPORT INFORMATION
  Report Type: Spontaneous
  Country: US (occurrence: US)
  Receive Date: 20160922
  Receipt Date: 20160922
  Transmission Date: 20161109
  Serious: Yes (Hospitalization)
  Sender: FDA-Public Use
  Company Number: None

PATIENT
  Age: 70 Year
  Sex: Male
  Weight: 78.3 kg

DRUGS (1)
  1. SAXAGLIPTIN [Suspect]
     Active Substance: SAXAGLIPTIN
     Indication: DIABETES MELLITUS
     Route: 048
     Dates: start: 20150126, end: 20150301

REACTIONS (5)
  - Gastrointestinal pain [None]
  - Weight decreased [None]
  - Nausea [None]
  - Vomiting [None]
  - Pancreatic mass [None]

NARRATIVE: CASE EVENT DATE: 20150303
